FAERS Safety Report 15500996 (Version 1)
Quarter: 2018Q4

REPORT INFORMATION
  Report Type: Spontaneous
  Country: US (occurrence: US)
  Receive Date: 20181015
  Receipt Date: 20181015
  Transmission Date: 20190205
  Serious: No
  Sender: FDA-Public Use
  Company Number: US-DUCHESNAY INC.-2056047

PATIENT
  Age: 58 Year
  Sex: Female

DRUGS (1)
  1. OSPHENA [Suspect]
     Active Substance: OSPEMIFENE
     Indication: VULVOVAGINAL DRYNESS
     Route: 048
     Dates: start: 20180919, end: 20180923

REACTIONS (5)
  - Pruritus [Recovering/Resolving]
  - Urticaria [Recovering/Resolving]
  - Mood swings [Recovering/Resolving]
  - Abdominal discomfort [Recovering/Resolving]
  - Product use in unapproved indication [Recovering/Resolving]

NARRATIVE: CASE EVENT DATE: 20180919
